FAERS Safety Report 15900940 (Version 3)
Quarter: 2021Q3

REPORT INFORMATION
  Report Type: Spontaneous
  Country: US (occurrence: US)
  Receive Date: 20190201
  Receipt Date: 20210907
  Transmission Date: 20211014
  Serious: Yes (Hospitalization, Other)
  Sender: FDA-Public Use
  Company Number: US-GILEAD-2019-0387824

PATIENT
  Age: 60 Year
  Sex: Male
  Weight: 82.09 kg

DRUGS (29)
  1. PREZISTA [Concomitant]
     Active Substance: DARUNAVIR ETHANOLATE
  2. VIRAMUNE [Concomitant]
     Active Substance: NEVIRAPINE
  3. LISINOPRIL. [Concomitant]
     Active Substance: LISINOPRIL
  4. NASONEX [Concomitant]
     Active Substance: MOMETASONE FUROATE
  5. ATRIPLA [Suspect]
     Active Substance: EFAVIRENZ\EMTRICITABINE\TENOFOVIR DISOPROXIL FUMARATE
     Indication: HIV INFECTION
     Dosage: UNK
     Route: 048
     Dates: start: 2006, end: 2012
  6. VENLAFAXINE [Concomitant]
     Active Substance: VENLAFAXINE HYDROCHLORIDE
  7. EPZICOM [Concomitant]
     Active Substance: ABACAVIR SULFATE\LAMIVUDINE
  8. HYDROCODONE [Concomitant]
     Active Substance: HYDROCODONE
  9. TAMSULOSIN [Concomitant]
     Active Substance: TAMSULOSIN
  10. STRIBILD [Suspect]
     Active Substance: COBICISTAT\ELVITEGRAVIR\EMTRICITABINE\TENOFOVIR DISOPROXIL FUMARATE
     Indication: HIV INFECTION
     Dosage: UNK
     Route: 048
     Dates: start: 2012, end: 2016
  11. BIKTARVY [Concomitant]
     Active Substance: BICTEGRAVIR SODIUM\EMTRICITABINE\TENOFOVIR ALAFENAMIDE FUMARATE
  12. PREZCOBIX [Concomitant]
     Active Substance: COBICISTAT\DARUNAVIR ETHANOLATE
  13. RETROVIR [Concomitant]
     Active Substance: ZIDOVUDINE
  14. ATORVASTATIN [Concomitant]
     Active Substance: ATORVASTATIN
  15. NEXIUM I.V. [Concomitant]
     Active Substance: ESOMEPRAZOLE SODIUM
  16. DOCUSATE [Concomitant]
     Active Substance: DOCUSATE
  17. CIMDUO [Concomitant]
     Active Substance: LAMIVUDINE\TENOFOVIR DISOPROXIL FUMARATE
  18. EPIVIR [Concomitant]
     Active Substance: LAMIVUDINE
  19. NORVIR [Concomitant]
     Active Substance: RITONAVIR
  20. TRIZIVIR [Concomitant]
     Active Substance: ABACAVIR SULFATE\LAMIVUDINE\ZIDOVUDINE
  21. VIRAMUNE XR [Concomitant]
     Active Substance: NEVIRAPINE
  22. AIMOVIG [Concomitant]
     Active Substance: ERENUMAB-AOOE
  23. PROAIR [FLUTICASONE PROPIONATE] [Concomitant]
     Active Substance: FLUTICASONE PROPIONATE
  24. OXYCODONE [Concomitant]
     Active Substance: OXYCODONE
  25. KEPPRA [Concomitant]
     Active Substance: LEVETIRACETAM
  26. TRUVADA [Suspect]
     Active Substance: EMTRICITABINE\TENOFOVIR DISOPROXIL FUMARATE
     Indication: HIV INFECTION
     Dosage: UNK
     Route: 048
     Dates: start: 2004, end: 2006
  27. REYATAZ [Concomitant]
     Active Substance: ATAZANAVIR SULFATE
  28. SUSTIVA [Concomitant]
     Active Substance: EFAVIRENZ
  29. SILDENAFIL. [Concomitant]
     Active Substance: SILDENAFIL

REACTIONS (19)
  - Nephrolithiasis [Unknown]
  - Arthralgia [Not Recovered/Not Resolved]
  - Anxiety [Not Recovered/Not Resolved]
  - Diabetes mellitus [Unknown]
  - Back pain [Not Recovered/Not Resolved]
  - Bone density decreased [Unknown]
  - Bone disorder [Not Recovered/Not Resolved]
  - Renal impairment [Not Recovered/Not Resolved]
  - Upper limb fracture [Unknown]
  - Economic problem [Not Recovered/Not Resolved]
  - Fracture [Not Recovered/Not Resolved]
  - Osteoporosis [Not Recovered/Not Resolved]
  - Cervical vertebral fracture [Unknown]
  - Emotional distress [Recovered/Resolved]
  - Anhedonia [Not Recovered/Not Resolved]
  - Tendon rupture [Unknown]
  - Loss of personal independence in daily activities [Unknown]
  - Insomnia [Unknown]
  - Pain [Recovered/Resolved]

NARRATIVE: CASE EVENT DATE: 2012
